FAERS Safety Report 9133779 (Version 5)
Quarter: 2013Q3

REPORT INFORMATION
  Report Type: Spontaneous
  Country: US (occurrence: US)
  Receive Date: 20130303
  Receipt Date: 20130708
  Transmission Date: 20140515
  Serious: Yes (Other)
  Sender: FDA-Public Use
  Company Number: US-009507513-1302USA011945

PATIENT
  Age: 52 Year
  Sex: Female

DRUGS (5)
  1. PEG-INTRON [Suspect]
     Indication: HEPATITIS C
     Dosage: UNK
     Route: 058
     Dates: start: 20030207, end: 20050107
  2. PEG-INTRON [Suspect]
     Dosage: UNK
     Route: 058
     Dates: start: 20130222
  3. REBETOL [Suspect]
     Indication: HEPATITIS C
     Dosage: UNK
     Route: 048
     Dates: start: 20030207, end: 20050107
  4. REBETOL [Suspect]
     Dosage: UNK
     Route: 048
     Dates: start: 20130222
  5. VICTRELIS [Suspect]
     Indication: HEPATITIS C
     Dosage: UNK
     Route: 048
     Dates: start: 20130323

REACTIONS (10)
  - Anaemia [Unknown]
  - Gastrointestinal disorder [Unknown]
  - Skin disorder [Unknown]
  - Vomiting [Unknown]
  - Nausea [Unknown]
  - Drug ineffective [Unknown]
  - Feeling abnormal [Unknown]
  - Decreased appetite [Unknown]
  - Dry mouth [Unknown]
  - Ageusia [Unknown]
